FAERS Safety Report 14411313 (Version 5)
Quarter: 2018Q1

REPORT INFORMATION
  Report Type: Spontaneous
  Country: IT (occurrence: IT)
  Receive Date: 20180119
  Receipt Date: 20180309
  Transmission Date: 20180509
  Serious: Yes (Death, Other)
  Sender: FDA-Public Use
  Company Number: IT-ABBVIE-18S-083-2227917-00

PATIENT
  Age: 66 Year
  Sex: Male
  Weight: 73 kg

DRUGS (3)
  1. EXVIERA [Suspect]
     Active Substance: DASABUVIR
     Indication: HEPATITIS C
     Route: 048
     Dates: start: 20160225, end: 20160326
  2. VIEKIRAX [Suspect]
     Active Substance: OMBITASVIR\PARITAPREVIR\RITONAVIR
     Indication: HEPATITIS C
     Route: 048
     Dates: start: 20160226, end: 20160326
  3. CARDIOASPIRIN [Concomitant]
     Active Substance: ASPIRIN
     Indication: PRODUCT USED FOR UNKNOWN INDICATION
     Dosage: COMPRESSE GASTRORESISTENTI

REACTIONS (9)
  - Lung carcinoma cell type unspecified stage 0 [Unknown]
  - Sepsis [Unknown]
  - Balance disorder [Fatal]
  - Asthenia [Fatal]
  - Staphylococcal sepsis [Fatal]
  - Lymphoma [Unknown]
  - Vertigo [Fatal]
  - Cardiac arrest [Unknown]
  - Speech disorder [Fatal]

NARRATIVE: CASE EVENT DATE: 20160228
